FAERS Safety Report 8128147-7 (Version None)
Quarter: 2011Q4

REPORT INFORMATION
  Report Type: 
  Country: None (occurrence: None)
  Receive Date: 20111228
  Receipt Date: 20110628
  Transmission Date: 20120403
  Serious: Yes (Hospitalization)
  Sender: FDA-Public Use
  Company Number: WAES 1106USA04071

PATIENT
  Age: 82 Year
  Sex: Female
  Weight: 100.6985 kg

DRUGS (6)
  1. ZANTAC [Concomitant]
  2. SYNTHROID [Concomitant]
  3. ZOCOR [Concomitant]
  4. ZETIA [Suspect]
     Indication: BLOOD CHOLESTEROL DECREASED
     Dosage: 10 MG/PO
     Route: 048
     Dates: start: 20090101, end: 20090101
  5. ARAVA [Concomitant]
  6. BENECOL [Concomitant]

REACTIONS (2)
  - ARTHRALGIA [None]
  - FATIGUE [None]
